FAERS Safety Report 10590185 (Version 1)
Quarter: 2014Q4

REPORT INFORMATION
  Report Type: Spontaneous
  Country: US (occurrence: US)
  Receive Date: 20141118
  Receipt Date: 20141118
  Transmission Date: 20150529
  Serious: Yes (Other)
  Sender: FDA-Public Use
  Company Number: US-PFIZER INC-2014314629

PATIENT
  Age: 74 Year
  Sex: Female
  Weight: 78 kg

DRUGS (5)
  1. CLONAZEPAM. [Concomitant]
     Active Substance: CLONAZEPAM
     Indication: DEPRESSION
  2. ATORVASTATIN CALCIUM. [Suspect]
     Active Substance: ATORVASTATIN CALCIUM
     Indication: BLOOD CHOLESTEROL INCREASED
     Dosage: 10 MG, DAILY
  3. FUROSEMIDE. [Concomitant]
     Active Substance: FUROSEMIDE
     Indication: BLOOD PRESSURE
     Dosage: 40 MG, 2X/DAY
  4. CYMBALTA [Concomitant]
     Active Substance: DULOXETINE HYDROCHLORIDE
     Indication: NEURALGIA
     Dosage: 60 MG, 1X/DAY
  5. CLONAZEPAM. [Concomitant]
     Active Substance: CLONAZEPAM
     Indication: ANXIETY
     Dosage: 1 MG, 3X/DAY
     Route: 048

REACTIONS (19)
  - Back pain [Unknown]
  - Depression [Unknown]
  - Renal disorder [Unknown]
  - Osteonecrosis of jaw [Unknown]
  - Pain in extremity [Unknown]
  - Peripheral swelling [Unknown]
  - Gait disturbance [Not Recovered/Not Resolved]
  - Pain [Unknown]
  - Diarrhoea [Not Recovered/Not Resolved]
  - Osteomyelitis [Unknown]
  - Asthenia [Unknown]
  - Osteoporosis [Unknown]
  - Tooth disorder [Unknown]
  - Anxiety [Unknown]
  - Lymphoedema [Unknown]
  - Muscular weakness [Unknown]
  - Mouth ulceration [Unknown]
  - Scoliosis [Unknown]
  - Blood pressure [Unknown]

NARRATIVE: CASE EVENT DATE: 201310
